FAERS Safety Report 5266362-0 (Version None)
Quarter: 2007Q1

REPORT INFORMATION
  Report Type: 
  Country: None (occurrence: None)
  Receive Date: 20070315
  Receipt Date: 20070305
  Transmission Date: 20070707
  Serious: Yes (Other)
  Sender: FDA-Public Use
  Company Number: JP-MERCK-0702USA03968

PATIENT
  Age: 75 Year
  Sex: Female
  Weight: 40 kg

DRUGS (4)
  1. ZOCOR [Suspect]
     Indication: HYPERLIPIDAEMIA
     Route: 048
     Dates: start: 20031225, end: 20050525
  2. ZOCOR [Suspect]
     Route: 048
     Dates: start: 20050706, end: 20060726
  3. ZOCOR [Suspect]
     Indication: HYPERCHOLESTEROLAEMIA
     Route: 048
     Dates: start: 20031225, end: 20050525
  4. ZOCOR [Suspect]
     Route: 048
     Dates: start: 20050706, end: 20060726

REACTIONS (4)
  - GASTRITIS [None]
  - ILEAL ULCER [None]
  - IRON DEFICIENCY ANAEMIA [None]
  - RENAL CYST [None]
